FAERS Safety Report 14860978 (Version 1)
Quarter: 2018Q2

REPORT INFORMATION
  Report Type: Spontaneous
  Country: US (occurrence: US)
  Receive Date: 20180423
  Receipt Date: 20180423
  Transmission Date: 20180711
  Serious: Yes (Hospitalization)
  Sender: FDA-Public Use
  Company Number: None

PATIENT
  Age: 82 Year
  Sex: Male

DRUGS (23)
  1. CEFUROXIME. [Concomitant]
     Active Substance: CEFUROXIME
  2. CHILD ASPIRIN [Concomitant]
  3. KIONEX [Concomitant]
     Active Substance: SODIUM POLYSTYRENE SULFONATE
  4. FOLIC ACID. [Concomitant]
     Active Substance: FOLIC ACID
  5. HYDRALAZINE [Concomitant]
     Active Substance: HYDRALAZINE HYDROCHLORIDE
  6. CALCITROL [Concomitant]
     Active Substance: CALCITRIOL
  7. CLINDAMYCIN. [Concomitant]
     Active Substance: CLINDAMYCIN
  8. ALLOPURINOL. [Concomitant]
     Active Substance: ALLOPURINOL
  9. ANORO ELLIPT [Concomitant]
  10. FUROSEMIDE. [Concomitant]
     Active Substance: FUROSEMIDE
  11. ULORIC [Concomitant]
     Active Substance: FEBUXOSTAT
  12. FERROUS SULFATE. [Concomitant]
     Active Substance: FERROUS SULFATE
  13. ISOSORBIDE DIN [Concomitant]
  14. RENVELA [Concomitant]
     Active Substance: SEVELAMER CARBONATE
  15. TRAMADOL. [Concomitant]
     Active Substance: TRAMADOL
  16. VITAMIN D [Concomitant]
     Active Substance: CHOLECALCIFEROL
  17. PROCRIT [Suspect]
     Active Substance: ERYTHROPOIETIN
     Indication: CHRONIC KIDNEY DISEASE
     Route: 058
     Dates: start: 20160528
  18. PREDNISONE. [Concomitant]
     Active Substance: PREDNISONE
  19. SODIUM BICARB [Concomitant]
     Active Substance: SODIUM BICARBONATE
  20. CARVEDILOL. [Concomitant]
     Active Substance: CARVEDILOL
  21. FINASTERIDE. [Concomitant]
     Active Substance: FINASTERIDE
  22. GABAPENTIN. [Concomitant]
     Active Substance: GABAPENTIN
  23. TAMSULOSIN [Concomitant]
     Active Substance: TAMSULOSIN

REACTIONS (2)
  - Drug dose omission [None]
  - Bronchitis [None]

NARRATIVE: CASE EVENT DATE: 20180419
